FAERS Safety Report 8891437 (Version 1)
Quarter: 2012Q4

REPORT INFORMATION
  Report Type: Spontaneous
  Country: US (occurrence: None)
  Receive Date: 20121101
  Receipt Date: 20121101
  Transmission Date: 20130627
  Serious: Yes (Hospitalization, Other)
  Sender: FDA-Public Use
  Company Number: MC201200440

PATIENT
  Age: 62 Year
  Sex: Male
  Weight: 78.4 kg

DRUGS (4)
  1. ANGIOMAX [Suspect]
     Indication: PERCUTANEOUS CORONARY INTERVENTION
     Route: 040
     Dates: start: 20120428, end: 20120428
  2. PLAVIX [Concomitant]
  3. MAALOX [Concomitant]
  4. ASA (ASA) [Concomitant]

REACTIONS (4)
  - Cardiac failure congestive [None]
  - Thrombosis in device [None]
  - Electrocardiogram ST segment elevation [None]
  - Chest pain [None]
